FAERS Safety Report 14369871 (Version 2)
Quarter: 2018Q1

REPORT INFORMATION
  Report Type: Spontaneous
  Country: US (occurrence: US)
  Receive Date: 20180110
  Receipt Date: 20180220
  Transmission Date: 20180509
  Serious: Yes (Hospitalization)
  Sender: FDA-Public Use
  Company Number: US-ASTRAZENECA-2018SE01411

PATIENT
  Age: 745 Month
  Sex: Female
  Weight: 51.3 kg

DRUGS (4)
  1. SYMBICORT [Suspect]
     Active Substance: BUDESONIDE\FORMOTEROL FUMARATE DIHYDRATE
     Indication: EMPHYSEMA
     Dosage: 160/4.5 MCG TWO INHALATIONS TWO TIMES A DAY
     Route: 055
     Dates: start: 2010
  2. SPIRIVA [Concomitant]
     Active Substance: TIOTROPIUM BROMIDE MONOHYDRATE
     Indication: EMPHYSEMA
     Route: 055
  3. SPIRIVA [Concomitant]
     Active Substance: TIOTROPIUM BROMIDE MONOHYDRATE
     Indication: ASTHMA
     Route: 055
  4. SYMBICORT [Suspect]
     Active Substance: BUDESONIDE\FORMOTEROL FUMARATE DIHYDRATE
     Indication: ASTHMA
     Dosage: 160/4.5 MCG TWO INHALATIONS TWO TIMES A DAY
     Route: 055
     Dates: start: 2010

REACTIONS (7)
  - Inability to afford medication [Unknown]
  - Asthma [Unknown]
  - Product storage error [Unknown]
  - Off label use of device [Unknown]
  - Device issue [Unknown]
  - Circumstance or information capable of leading to medication error [Unknown]
  - Intentional device misuse [Unknown]

NARRATIVE: CASE EVENT DATE: 201707
